FAERS Safety Report 5600148-X (Version None)
Quarter: 2008Q1

REPORT INFORMATION
  Report Type: 
  Country: None (occurrence: None)
  Receive Date: 20080123
  Receipt Date: 20080121
  Transmission Date: 20080703
  Serious: Yes (Hospitalization)
  Sender: FDA-Public Use
  Company Number: D0055863A

PATIENT
  Age: 70 Year
  Sex: Female

DRUGS (3)
  1. REQUIP [Suspect]
     Indication: PARKINSON'S DISEASE
     Route: 048
  2. AMANTADINE HCL [Suspect]
     Indication: PARKINSON'S DISEASE
     Route: 048
  3. L-DOPA [Concomitant]
     Indication: PARKINSON'S DISEASE
     Route: 048

REACTIONS (8)
  - DRY MOUTH [None]
  - HALLUCINATION [None]
  - OEDEMA PERIPHERAL [None]
  - PATHOLOGICAL GAMBLING [None]
  - SCLERODERMA [None]
  - SOMNOLENCE [None]
  - SWELLING FACE [None]
  - VERTIGO [None]
